FAERS Safety Report 6399492-0 (Version None)
Quarter: 2009Q4

REPORT INFORMATION
  Report Type: 
  Country: None (occurrence: None)
  Receive Date: 20091008
  Receipt Date: 20091008
  Transmission Date: 20100525
  Serious: Yes (Other)
  Sender: FDA-Public Use
  Company Number: None

PATIENT
  Age: 34 Year
  Sex: Male

DRUGS (2)
  1. ZOLPIDEM [Suspect]
     Indication: ANXIETY
     Dosage: 10MG PO QHS
     Route: 048
     Dates: start: 20081117
  2. ZOLPIDEM [Suspect]
     Indication: INSOMNIA
     Dosage: 10MG PO QHS
     Route: 048
     Dates: start: 20081117

REACTIONS (4)
  - DEPRESSION [None]
  - DRUG INEFFECTIVE [None]
  - IRRITABILITY [None]
  - PRODUCT SUBSTITUTION ISSUE [None]
